FAERS Safety Report 17781224 (Version 1)
Quarter: 2020Q2

REPORT INFORMATION
  Report Type: Spontaneous
  Country: US (occurrence: US)
  Receive Date: 20200514
  Receipt Date: 20200514
  Transmission Date: 20200714
  Serious: No
  Sender: FDA-Public Use
  Company Number: US-TORRENT-00009176

PATIENT
  Age: 64 Year
  Sex: Female
  Weight: 77 kg

DRUGS (7)
  1. ALPRAZOLAM. [Concomitant]
     Active Substance: ALPRAZOLAM
     Indication: PANIC ATTACK
     Dosage: PRESCRIBED AS TWICE, SHE TAKES ONCE A DAY
  2. ALLEGRA [Concomitant]
     Active Substance: FEXOFENADINE HYDROCHLORIDE
     Indication: HYPERSENSITIVITY
     Dosage: UNKNOWN
  3. ASPIRIN. [Concomitant]
     Active Substance: ASPIRIN
     Indication: CARDIAC DISORDER
  4. RIZATRIPTAN. [Concomitant]
     Active Substance: RIZATRIPTAN
     Indication: MIGRAINE
     Dosage: 2 TABLETS EVERY 24 HOURS
  5. LOSARTAN AND HYDROCHLOROTHIAZIDE [Suspect]
     Active Substance: HYDROCHLOROTHIAZIDE\LOSARTAN POTASSIUM
     Indication: HYPERTENSION
     Dosage: 50 /12.5 MG, IN THE MORNING,  FROM 5 YEARS
     Dates: end: 201908
  6. TRINTELLIX [Concomitant]
     Active Substance: VORTIOXETINE HYDROBROMIDE
     Indication: DEPRESSION
     Dosage: ONE PILL A DAY IN THE MORNING
  7. ZYRTEC [Concomitant]
     Active Substance: CETIRIZINE HYDROCHLORIDE
     Indication: HYPERSENSITIVITY

REACTIONS (7)
  - Bedridden [Unknown]
  - Weight decreased [Unknown]
  - Chest pain [Recovered/Resolved]
  - Vomiting [Recovered/Resolved]
  - Hypophagia [Recovering/Resolving]
  - Malaise [Recovering/Resolving]
  - Panic attack [Unknown]

NARRATIVE: CASE EVENT DATE: 201907
